FAERS Safety Report 5209338-1 (Version None)
Quarter: 2006Q4

REPORT INFORMATION
  Report Type: 
  Country: None (occurrence: None)
  Receive Date: 20061101
  Receipt Date: 20060322
  Transmission Date: 20070319
  Serious: Yes (Hospitalization)
  Sender: FDA-Public Use
  Company Number: DSA_27965_2006

PATIENT
  Age: 71 Year
  Sex: Female

DRUGS (12)
  1. ATIVAN [Suspect]
     Indication: AGITATION
     Dosage: 1  MG ONCE PO
     Route: 048
     Dates: start: 20060319, end: 20060319
  2. AAB-001 (BLINDED STUDY DRUG) [Suspect]
     Indication: DEMENTIA ALZHEIMER'S TYPE
     Dosage: DF 1X Q3MO IV
     Route: 042
     Dates: start: 20050613
  3. BACTRIM DS [Concomitant]
  4. PYRIDIUM [Concomitant]
  5. EXELON [Concomitant]
  6. WELLBUTRIN [Concomitant]
  7. ABILIFY [Concomitant]
  8. PREMPRO [Concomitant]
  9. MULTI-VITAMIN [Concomitant]
  10. ASCORBIC ACID [Concomitant]
  11. VITAMIN E [Concomitant]
  12. GINKGO BILOBA [Concomitant]

REACTIONS (2)
  - DELIRIUM [None]
  - HALLUCINATION [None]
